APPROVED DRUG PRODUCT: ENLON
Active Ingredient: EDROPHONIUM CHLORIDE
Strength: 10MG/ML
Dosage Form/Route: INJECTABLE;INJECTION
Application: A088873 | Product #001
Applicant: PHARMOBEDIENT CONSULTING LLC
Approved: Aug 6, 1985 | RLD: No | RS: No | Type: DISCN